FAERS Safety Report 20581738 (Version 3)
Quarter: 2022Q3

REPORT INFORMATION
  Report Type: Spontaneous
  Country: JP (occurrence: JP)
  Receive Date: 20220311
  Receipt Date: 20220715
  Transmission Date: 20221026
  Serious: Yes (Other)
  Sender: FDA-Public Use
  Company Number: JP-GLAXOSMITHKLINE-JP2022JPN042889

PATIENT

DRUGS (4)
  1. SOTROVIMAB [Suspect]
     Active Substance: SOTROVIMAB
     Indication: COVID-19
     Dosage: UNK
     Route: 041
     Dates: start: 20220303, end: 20220303
  2. FAMOTIDINE [Suspect]
     Active Substance: FAMOTIDINE
     Indication: Abdominal discomfort
     Dosage: UNK
     Route: 048
     Dates: start: 20220125, end: 20220420
  3. REBAMIPIDE [Suspect]
     Active Substance: REBAMIPIDE
     Indication: Abdominal discomfort
     Dosage: UNK
     Route: 048
     Dates: start: 20220111, end: 20220125
  4. CEFTRIAXONE [Suspect]
     Active Substance: CEFTRIAXONE
     Indication: Pneumonia
     Dosage: UNK
     Route: 041
     Dates: start: 20220304, end: 20220307

REACTIONS (2)
  - Altered state of consciousness [Recovered/Resolved]
  - Exposure during pregnancy [Unknown]

NARRATIVE: CASE EVENT DATE: 20220411
